FAERS Safety Report 19658630 (Version 3)
Quarter: 2021Q3

REPORT INFORMATION
  Report Type: Report from Study
  Country: US (occurrence: US)
  Receive Date: 20210805
  Receipt Date: 20210921
  Transmission Date: 20211014
  Serious: No
  Sender: FDA-Public Use
  Company Number: NVSC2021US169402

PATIENT
  Sex: Male

DRUGS (1)
  1. COSENTYX [Suspect]
     Active Substance: SECUKINUMAB
     Indication: ANKYLOSING SPONDYLITIS
     Dosage: 150 MG, QW,(EVERY WEEK TIMES 5 WEEK, LOADING DOSE, EVERY 4 WEEKS THEREAFTER)
     Route: 058
     Dates: start: 20210715

REACTIONS (5)
  - Gastrointestinal disorder [Recovering/Resolving]
  - Abdominal pain [Unknown]
  - Anxiety [Unknown]
  - Diarrhoea [Unknown]
  - Nervousness [Unknown]
